FAERS Safety Report 7293599-1 (Version None)
Quarter: 2011Q1

REPORT INFORMATION
  Report Type: 
  Country: None (occurrence: None)
  Receive Date: 20110215
  Receipt Date: 20110211
  Transmission Date: 20110831
  Serious: Yes (Hospitalization)
  Sender: FDA-Public Use
  Company Number: A0848940A

PATIENT
  Age: 67 Year
  Sex: Male

DRUGS (1)
  1. AVANDIA [Suspect]
     Indication: DIABETES MELLITUS
     Dosage: 8MG PER DAY
     Route: 048

REACTIONS (10)
  - CORONARY ARTERY DISEASE [None]
  - ABDOMINAL PAIN [None]
  - DEPRESSION [None]
  - MYOCARDIAL INFARCTION [None]
  - CARDIAC ARREST [None]
  - HYPOXIC-ISCHAEMIC ENCEPHALOPATHY [None]
  - MUSCLE TIGHTNESS [None]
  - DYSPNOEA [None]
  - MYALGIA [None]
  - DIZZINESS [None]
